FAERS Safety Report 23456011 (Version 1)
Quarter: 2024Q1

REPORT INFORMATION
  Report Type: Spontaneous
  Country: US (occurrence: None)
  Receive Date: 20240129
  Receipt Date: 20240129
  Transmission Date: 20240409
  Serious: Yes (Hospitalization)
  Sender: FDA-Public Use
  Company Number: None

PATIENT
  Age: 40 Year
  Sex: Male

DRUGS (2)
  1. ADEMPAS [Suspect]
     Active Substance: RIOCIGUAT
     Indication: Pulmonary hypertension
     Dosage: OTHER QUANTITY : 2.5MG;?FREQUENCY : 3 TIMES A DAY;?
     Route: 048
     Dates: start: 20231102
  2. OPSUMIT [Suspect]
     Active Substance: MACITENTAN

REACTIONS (2)
  - Hypoxia [None]
  - Oedema [None]

NARRATIVE: CASE EVENT DATE: 20240126
